FAERS Safety Report 5454293-2 (Version None)
Quarter: 2007Q3

REPORT INFORMATION
  Report Type: 
  Country: None (occurrence: None)
  Receive Date: 20070917
  Receipt Date: 20070330
  Transmission Date: 20080115
  Serious: Yes (Other)
  Sender: FDA-Public Use
  Company Number: US-ASTRAZENECA-2006UW11811

PATIENT
  Sex: Female
  Weight: 72.7 kg

DRUGS (6)
  1. SEROQUEL [Suspect]
     Route: 048
  2. ZYPREXA [Suspect]
  3. ABILIFY [Concomitant]
  4. GEODON [Concomitant]
  5. NAVANE [Concomitant]
  6. RISPERDAL [Concomitant]

REACTIONS (1)
  - PANCREATITIS [None]
